FAERS Safety Report 14633986 (Version 1)
Quarter: 2018Q1

REPORT INFORMATION
  Report Type: Spontaneous
  Country: US (occurrence: US)
  Receive Date: 20180314
  Receipt Date: 20180314
  Transmission Date: 20180509
  Serious: No
  Sender: FDA-Public Use
  Company Number: US-ELI_LILLY_AND_COMPANY-US201802007971

PATIENT
  Sex: Female

DRUGS (9)
  1. METFORMIN [Concomitant]
     Active Substance: METFORMIN HYDROCHLORIDE
     Indication: DIABETES MELLITUS
  2. TALTZ [Suspect]
     Active Substance: IXEKIZUMAB
     Dosage: 80 MG, OTHER, EVERYTWO WEEKS
  3. VICTOZA [Concomitant]
     Active Substance: LIRAGLUTIDE
     Indication: DIABETES MELLITUS
  4. INSULIN [Concomitant]
     Active Substance: INSULIN NOS
     Dosage: 65 IU, TID
  5. INSULIN [Concomitant]
     Active Substance: INSULIN NOS
     Dosage: 50 IU, TID
  6. TALTZ [Suspect]
     Active Substance: IXEKIZUMAB
     Dosage: 80 MG, MONTHLY (1/M)
  7. INSULIN [Concomitant]
     Active Substance: INSULIN NOS
     Indication: DIABETES MELLITUS
     Dosage: 70 IU, TID
  8. TALTZ [Suspect]
     Active Substance: IXEKIZUMAB
     Indication: PSORIASIS
     Dosage: 80 MG, OTHER, EVERY TWO WEEKS
     Route: 058
  9. LANTUS [Concomitant]
     Active Substance: INSULIN GLARGINE
     Indication: PRODUCT USED FOR UNKNOWN INDICATION

REACTIONS (3)
  - Psoriasis [Recovering/Resolving]
  - Blood glucose increased [Recovering/Resolving]
  - Glycosylated haemoglobin increased [Recovering/Resolving]
